FAERS Safety Report 10542008 (Version 3)
Quarter: 2014Q4

REPORT INFORMATION
  Report Type: Spontaneous
  Country: US (occurrence: US)
  Receive Date: 20141024
  Receipt Date: 20141229
  Transmission Date: 20150529
  Serious: Yes (Other)
  Sender: FDA-Public Use
  Company Number: US-MYLANLABS-2014M1007399

PATIENT

DRUGS (4)
  1. CISPLATIN. [Suspect]
     Active Substance: CISPLATIN
     Dosage: UNK, 2 CYCLES
     Route: 065
  2. GEMCITABINE [Suspect]
     Active Substance: GEMCITABINE\GEMCITABINE HYDROCHLORIDE
     Indication: BLADDER TRANSITIONAL CELL CARCINOMA
     Dosage: UNK
  3. MITOMYCIN MEDAC [Suspect]
     Active Substance: MITOMYCIN
     Indication: BLADDER TRANSITIONAL CELL CARCINOMA
     Route: 065
  4. GEMCITABINE [Suspect]
     Active Substance: GEMCITABINE\GEMCITABINE HYDROCHLORIDE
     Dosage: 2 CYCLES
     Route: 065

REACTIONS (2)
  - Chemical cystitis [Recovered/Resolved]
  - Thrombocytopenia [Not Recovered/Not Resolved]
